FAERS Safety Report 6477491-8 (Version None)
Quarter: 2009Q4

REPORT INFORMATION
  Report Type: 
  Country: None (occurrence: None)
  Receive Date: 20091207
  Receipt Date: 20091029
  Transmission Date: 20100525
  Serious: Yes (Other)
  Sender: FDA-Public Use
  Company Number: US-SANOFI-AVENTIS-A03200902726

PATIENT
  Age: 62 Year
  Sex: Male
  Weight: 114 kg

DRUGS (11)
  1. ZOLPIDEM TARTRATE [Suspect]
     Indication: SLEEP DISORDER
     Route: 048
     Dates: end: 20090601
  2. ZOLPIDEM TARTRATE [Suspect]
     Route: 048
  3. ZOLPIDEM TARTRATE [Suspect]
     Dosage: 10 TO 20 MG AT BEDTIME
     Route: 048
  4. LORATADINE [Concomitant]
     Indication: SEASONAL ALLERGY
     Route: 048
  5. MIRTAZAPINE [Concomitant]
     Route: 048
  6. FLUOXETINE [Concomitant]
     Indication: DEPRESSION
     Route: 048
  7. ZOCOR [Concomitant]
     Route: 048
  8. VARDENAFIL [Concomitant]
     Dosage: TAKE 20 MG AS DIRECTED 1 HOUR BEFORE ANTICIPATED SEXUAL ACTIVITY
     Route: 048
  9. ASPIRIN [Concomitant]
     Route: 048
  10. TYLENOL (CAPLET) [Concomitant]
  11. LOVAZA [Concomitant]
     Route: 048

REACTIONS (16)
  - ABNORMAL BEHAVIOUR [None]
  - AMNESIA [None]
  - ANXIETY [None]
  - CONFUSIONAL STATE [None]
  - DISTURBANCE IN ATTENTION [None]
  - IMPAIRED DRIVING ABILITY [None]
  - INTERVERTEBRAL DISC DEGENERATION [None]
  - JOINT DISLOCATION [None]
  - LOSS OF CONSCIOUSNESS [None]
  - MEDICATION ERROR [None]
  - MUSCLE STRAIN [None]
  - OSTEOARTHRITIS [None]
  - PRODUCT COMMINGLING [None]
  - ROAD TRAFFIC ACCIDENT [None]
  - SOMNAMBULISM [None]
  - SYNCOPE [None]
